FAERS Safety Report 4835074-7 (Version None)
Quarter: 2005Q4

REPORT INFORMATION
  Report Type: 
  Country: None (occurrence: None)
  Receive Date: 20051121
  Receipt Date: 20051114
  Transmission Date: 20060501
  Serious: Yes (Hospitalization)
  Sender: FDA-Public Use
  Company Number: 2005SP003972

PATIENT
  Age: 45 Year
  Sex: Male

DRUGS (2)
  1. LUNESTA [Suspect]
     Dosage: ORAL
     Route: 048
     Dates: start: 20051113, end: 20051113
  2. AMBIEN [Concomitant]

REACTIONS (3)
  - MULTIPLE DRUG OVERDOSE [None]
  - PARTNER STRESS [None]
  - SELF-MEDICATION [None]
